FAERS Safety Report 7578910-6 (Version None)
Quarter: 2011Q2

REPORT INFORMATION
  Report Type: 
  Country: None (occurrence: None)
  Receive Date: 20110628
  Receipt Date: 20110613
  Transmission Date: 20111010
  Serious: Yes (Other)
  Sender: FDA-Public Use
  Company Number: JP-JNJFOC-20100204227

PATIENT
  Age: 64 Year
  Sex: Female
  Weight: 49 kg

DRUGS (13)
  1. TALION [Concomitant]
     Indication: PROPHYLAXIS
     Route: 048
     Dates: start: 20100204, end: 20100204
  2. REMICADE [Suspect]
     Route: 042
     Dates: start: 20100204
  3. ACTONEL [Concomitant]
     Route: 048
  4. PREDNISOLONE [Concomitant]
     Route: 048
     Dates: start: 20081107
  5. LANSOPRAZOLE [Concomitant]
     Route: 048
  6. REBAMIPIDE [Concomitant]
  7. REMICADE [Suspect]
     Route: 042
     Dates: start: 20091203
  8. ETANERCEPT [Concomitant]
  9. REMICADE [Suspect]
     Dosage: 6TH INFUSION
     Route: 042
     Dates: start: 20091023
  10. LOXOPROFEN [Concomitant]
  11. REMICADE [Suspect]
     Indication: RHEUMATOID ARTHRITIS
     Route: 042
     Dates: start: 20090911
  12. REMICADE [Suspect]
     Route: 042
     Dates: start: 20100106
  13. METHOTREXATE [Concomitant]
     Route: 048

REACTIONS (6)
  - OXYGEN SATURATION DECREASED [None]
  - BLOOD PRESSURE DECREASED [None]
  - INFUSION RELATED REACTION [None]
  - CHEST DISCOMFORT [None]
  - COUGH [None]
  - ORGANISING PNEUMONIA [None]
